FAERS Safety Report 10308789 (Version 2)
Quarter: 2014Q3

REPORT INFORMATION
  Report Type: Spontaneous
  Country: NL (occurrence: NL)
  Receive Date: 20140716
  Receipt Date: 20140912
  Transmission Date: 20150326
  Serious: Yes (Life-Threatening)
  Sender: FDA-Public Use
  Company Number: PHHY2014NL085519

PATIENT
  Age: 75 Year
  Sex: Female
  Weight: 88 kg

DRUGS (20)
  1. HEPARIN [Concomitant]
     Active Substance: HEPARIN SODIUM
     Dosage: UNK UKN, UNK
     Route: 065
     Dates: end: 20140630
  2. ACETYLSALICYLZUUR [Concomitant]
     Dosage: 80 MG, QD
     Route: 048
  3. PIPERACILLIN AND TAZOBACTAM [Concomitant]
     Active Substance: PIPERACILLIN SODIUM\TAZOBACTAM SODIUM
     Dosage: 1 DF, TID
     Route: 042
     Dates: end: 20140713
  4. PANTOPRAZOLE [Suspect]
     Active Substance: PANTOPRAZOLE SODIUM
     Dosage: 40 MG, QD
     Dates: start: 20140605, end: 20140725
  5. MIRTAZAPINE. [Suspect]
     Active Substance: MIRTAZAPINE
     Indication: RESTLESSNESS
     Dosage: 7.5 MG, QD
     Route: 048
     Dates: start: 20140627, end: 20140702
  6. CLOPIDOGREL [Suspect]
     Active Substance: CLOPIDOGREL BISULFATE
     Indication: ACUTE CORONARY SYNDROME
     Dosage: 75 MG, QD
     Route: 048
     Dates: start: 20140618, end: 20140702
  7. ZYVOXID [Suspect]
     Active Substance: LINEZOLID
     Indication: ABDOMINAL ABSCESS
     Dosage: 600 MG, BID
     Route: 042
     Dates: start: 20140628, end: 20140630
  8. LIPITOR [Concomitant]
     Active Substance: ATORVASTATIN CALCIUM
     Route: 048
  9. ALBUMAN [Concomitant]
     Dosage: UNK UKN, UNK
     Route: 042
     Dates: end: 20140702
  10. KALIUM CHLORID [Concomitant]
     Route: 065
  11. THIAMINE [Concomitant]
     Active Substance: THIAMINE
     Dosage: 1 ML, QD
     Route: 065
  12. FRAXIPARINE [Concomitant]
     Active Substance: NADROPARIN CALCIUM
     Dosage: 0.3 ML, QD
     Route: 058
  13. LORAZEPAM. [Concomitant]
     Active Substance: LORAZEPAM
     Route: 048
  14. MIDAZOLAM [Concomitant]
     Active Substance: MIDAZOLAM\MIDAZOLAM HYDROCHLORIDE
     Route: 065
  15. HALDOL DECANOATE [Concomitant]
     Active Substance: HALOPERIDOL DECANOATE
     Dosage: 0.3 ML, QID
     Route: 065
     Dates: end: 20140630
  16. SDD MONDPASTA [Concomitant]
     Dosage: 10 ML, QID
     Route: 003
  17. VANCOMYCIN [Suspect]
     Active Substance: VANCOMYCIN
     Dosage: 1000 MG, BID
     Route: 042
     Dates: start: 20140619, end: 20140701
  18. BERODUAL [Concomitant]
     Active Substance: FENOTEROL HYDROBROMIDE\IPRATROPIUM BROMIDE
     Dosage: 1 DF, 6QD
     Route: 055
  19. PARACETAMOL [Suspect]
     Active Substance: ACETAMINOPHEN
     Indication: PAIN
     Dosage: 1000 MG, QID
     Route: 048
     Dates: start: 20140605, end: 20140702
  20. FENTANYL. [Concomitant]
     Active Substance: FENTANYL
     Route: 065

REACTIONS (1)
  - Agranulocytosis [Recovered/Resolved]

NARRATIVE: CASE EVENT DATE: 20140628
